FAERS Safety Report 6526022-2 (Version None)
Quarter: 2010Q1

REPORT INFORMATION
  Report Type: 
  Country: None (occurrence: None)
  Receive Date: 20100104
  Receipt Date: 20091221
  Transmission Date: 20100710
  Serious: No
  Sender: FDA-Public Use
  Company Number: US-B.I. PHARMACEUTICALS,INC./RIDGEFIELD-2009-BP-13988BP

PATIENT
  Age: 68 Year
  Sex: Male
  Weight: 81.7 kg

DRUGS (1)
  1. FLOMAX [Suspect]
     Dosage: 0.4 MG

REACTIONS (1)
  - DYSPNOEA [None]
